FAERS Safety Report 9916931 (Version 1)
Quarter: 2014Q1

REPORT INFORMATION
  Report Type: Report from Study
  Country: SE (occurrence: SE)
  Receive Date: 20140221
  Receipt Date: 20140221
  Transmission Date: 20141002
  Serious: Yes (Other)
  Sender: FDA-Public Use
  Company Number: SE-AMGEN-SWECT2014012566

PATIENT
  Age: 35 Year
  Sex: Female

DRUGS (1)
  1. ETANERCEPT [Suspect]
     Indication: RHEUMATOID ARTHRITIS
     Dosage: UNK
     Route: 065
     Dates: start: 19991203

REACTIONS (3)
  - Reproductive tract disorder [Unknown]
  - Infection in an immunocompromised host [Unknown]
  - Dyspnoea [Recovering/Resolving]
